FAERS Safety Report 23198359 (Version 9)
Quarter: 2025Q4

REPORT INFORMATION
  Report Type: Other
  Country: US (occurrence: US)
  Receive Date: 20231117
  Receipt Date: 20251026
  Transmission Date: 20260118
  Serious: No
  Sender: TRAVERE THERAPEUTICS
  Company Number: US-TRAVERE-2023TVT00459

PATIENT
  Age: 68 Year
  Sex: Male

DRUGS (3)
  1. FILSPARI [Suspect]
     Active Substance: SPARSENTAN
     Indication: IgA nephropathy
     Dosage: EXPIRY DATE: 31-MAY-2026?EXPIRY DATE: 31-AUG-2026
     Route: 048
     Dates: start: 20240322
  2. FILSPARI [Suspect]
     Active Substance: SPARSENTAN
     Indication: Chronic kidney disease
  3. FUROSEMIDE [Suspect]
     Active Substance: FUROSEMIDE
     Indication: Product used for unknown indication
     Dates: start: 202412

REACTIONS (12)
  - Dyspnoea exertional [None]
  - Chromaturia [Unknown]
  - Weight decreased [Unknown]
  - Decreased appetite [Unknown]
  - Urine abnormality [None]
  - Peripheral swelling [Unknown]
  - Blood creatinine increased [Unknown]
  - Glomerular filtration rate decreased [Unknown]
  - Dizziness postural [Unknown]
  - Constipation [Unknown]
  - Pruritus [Recovering/Resolving]
  - Fatigue [Recovering/Resolving]
